FAERS Safety Report 7824907-8 (Version None)
Quarter: 2011Q4

REPORT INFORMATION
  Report Type: 
  Country: None (occurrence: None)
  Receive Date: 20111019
  Receipt Date: 20110318
  Transmission Date: 20120403
  Serious: No
  Sender: FDA-Public Use
  Company Number: US-BRISTOL-MYERS SQUIBB COMPANY-15561053

PATIENT
  Age: 61 Year
  Sex: Female
  Weight: 84 kg

DRUGS (4)
  1. VYTORIN [Concomitant]
  2. AVALIDE [Suspect]
     Dosage: 1 DOSAGE FORM = 300/25 UNIT NOT SPECIFIED.2 YRS AGO
  3. CALCIUM CARBONATE [Concomitant]
  4. ASPIRIN [Concomitant]

REACTIONS (1)
  - BLOOD PRESSURE INCREASED [None]
